FAERS Safety Report 5330411-1 (Version None)
Quarter: 2007Q2

REPORT INFORMATION
  Report Type: 
  Country: None (occurrence: None)
  Receive Date: 20070521
  Receipt Date: 20070509
  Transmission Date: 20071010
  Serious: Yes (Hospitalization)
  Sender: FDA-Public Use
  Company Number: FR-PFIZER INC-2007032586

PATIENT
  Sex: Female
  Weight: 60 kg

DRUGS (3)
  1. SU-011,248 [Suspect]
     Indication: RENAL CELL CARCINOMA STAGE UNSPECIFIED
     Route: 048
     Dates: start: 20060411, end: 20061120
  2. ESIDRIX [Concomitant]
     Route: 048
     Dates: start: 20061002, end: 20061207
  3. AVLOCARDYL [Concomitant]
     Route: 048
     Dates: start: 20061002, end: 20061207

REACTIONS (1)
  - ACUTE PULMONARY OEDEMA [None]
